FAERS Safety Report 7471721-1 (Version None)
Quarter: 2011Q2

REPORT INFORMATION
  Report Type: 
  Country: None (occurrence: None)
  Receive Date: 20110502
  Receipt Date: 20110417
  Transmission Date: 20111010
  Serious: Yes (Other)
  Sender: FDA-Public Use
  Company Number: 1000020465

PATIENT
  Age: 23 Year
  Sex: Male
  Weight: 65 kg

DRUGS (2)
  1. ESCITALOPRAM [Suspect]
     Dosage: (1 DOSAGE FORMS,ONCE), ORAL
     Route: 048
     Dates: start: 20110417, end: 20110417
  2. ZOPICLON (ZOPICLONE) (7.5 MILLIGRAM, TABLETS) [Suspect]
     Dosage: (150  MG,ONCE),ORAL
     Route: 048
     Dates: start: 20110417, end: 20110417

REACTIONS (3)
  - SUICIDE ATTEMPT [None]
  - HYPOKINESIA [None]
  - INTENTIONAL OVERDOSE [None]
